FAERS Safety Report 8750722 (Version 4)
Quarter: 2012Q4

REPORT INFORMATION
  Report Type: Spontaneous
  Country: GB (occurrence: None)
  Receive Date: 20120810
  Receipt Date: 20121205
  Transmission Date: 20130627
  Serious: Yes (Death, Hospitalization)
  Sender: FDA-Public Use
  Company Number: AUR-APL-2012-03348

PATIENT
  Age: 47 Year
  Sex: Male
  Weight: 101 kg

DRUGS (6)
  1. OLANZAPINE [Suspect]
     Indication: SCHIZOPHRENIA
     Dosage: (20 MG), ORAL, (20 MG), ORAL
     Route: 048
     Dates: start: 20111130
  2. OLANZAPINE [Suspect]
     Indication: OFF LABEL USE
     Dosage: (20 MG), ORAL, (20 MG), ORAL
     Route: 048
     Dates: start: 20111130
  3. OLANZAPINE [Suspect]
     Indication: SCHIZOPHRENIA
     Dosage: (20 MG), ORAL, (20 MG), ORAL
     Route: 048
     Dates: end: 20111128
  4. OLANZAPINE [Suspect]
     Indication: OFF LABEL USE
     Dosage: (20 MG), ORAL, (20 MG), ORAL
     Route: 048
     Dates: end: 20111128
  5. ZYPREXA [Suspect]
     Indication: SCHIZOPHRENIA
     Dosage: 10 MG DAILY AS NEEDED UP TO A MAXIMUM DOSE OF 20 MG FOR TWO OR THREE DAYS, INTRAMUSCULAR
     Route: 030
  6. MORPHINE [Concomitant]

REACTIONS (7)
  - Off label use [None]
  - Confusional state [None]
  - Shock [None]
  - Megacolon [None]
  - Intestinal infarction [None]
  - Systemic candida [None]
  - Multi-organ failure [None]
